FAERS Safety Report 21800149 (Version 1)
Quarter: 2022Q4

REPORT INFORMATION
  Report Type: Spontaneous
  Country: US (occurrence: US)
  Receive Date: 20221230
  Receipt Date: 20221230
  Transmission Date: 20230113
  Serious: Yes (Other)
  Sender: FDA-Public Use
  Company Number: US-drreddys-SPO/USA/22/0158452

PATIENT
  Age: 50 Year
  Sex: Female

DRUGS (14)
  1. LENALIDOMIDE [Suspect]
     Active Substance: LENALIDOMIDE
     Indication: Plasma cell myeloma
  2. LENALIDOMIDE [Suspect]
     Active Substance: LENALIDOMIDE
     Dosage: EVERY DAY ON DAYS 1-21, THEN TAKE 7 DAYS OFF?DOSE WAS REDUCED TO 15 MG
     Route: 048
  3. FAMOTIDINE [Concomitant]
     Active Substance: FAMOTIDINE
     Indication: Product used for unknown indication
  4. PANTOPRAZOLE SODIUM [Concomitant]
     Active Substance: PANTOPRAZOLE SODIUM
     Indication: Product used for unknown indication
  5. BACLOFEN TAB 20MG [Concomitant]
     Indication: Product used for unknown indication
  6. DEXAMETHASONE [Concomitant]
     Active Substance: DEXAMETHASONE
     Indication: Product used for unknown indication
  7. ELIQUIS [Concomitant]
     Active Substance: APIXABAN
     Indication: Product used for unknown indication
  8. HYDRALAZINE TAB 50mg [Concomitant]
     Indication: Product used for unknown indication
  9. HYDROCODONE CP1 15MG [Concomitant]
     Indication: Product used for unknown indication
  10. LOSARTAN POT TAB 100MG [Concomitant]
     Indication: Product used for unknown indication
  11. ONDANSETRON TBD 4MG [Concomitant]
     Indication: Product used for unknown indication
  12. POTASSIUM CH TBC 10MEQ [Concomitant]
     Indication: Product used for unknown indication
  13. PREGABALIN CAP 150MG [Concomitant]
     Indication: Product used for unknown indication
  14. VITAMIN D TAB 5 MCG(1000 [Concomitant]
     Indication: Product used for unknown indication

REACTIONS (10)
  - Bradycardia [Unknown]
  - Feeling abnormal [Unknown]
  - Hot flush [Unknown]
  - Somnolence [Unknown]
  - Pain in extremity [Unknown]
  - Asthenia [Unknown]
  - Nausea [Unknown]
  - Headache [Unknown]
  - Fatigue [Unknown]
  - Depression [Unknown]
